FAERS Safety Report 4644662-2 (Version None)
Quarter: 2005Q2

REPORT INFORMATION
  Report Type: 
  Country: None (occurrence: None)
  Receive Date: 20050426
  Receipt Date: 20050418
  Transmission Date: 20051028
  Serious: Yes (Hospitalization, Other)
  Sender: FDA-Public Use
  Company Number: PHBS2005NL05531

PATIENT
  Age: 38 Year
  Sex: Female

DRUGS (3)
  1. PARLODEL [Suspect]
     Dosage: 2.5 MG, QD
     Route: 048
     Dates: start: 20050415
  2. METFORMIN HCL [Concomitant]
     Dosage: 2500MG/DAY
  3. SPIRONOLACTONE [Concomitant]

REACTIONS (7)
  - DEPRESSED LEVEL OF CONSCIOUSNESS [None]
  - DYSKINESIA [None]
  - EYELID DISORDER [None]
  - FATIGUE [None]
  - PERIPHERAL COLDNESS [None]
  - RASH [None]
  - VOMITING [None]
